FAERS Safety Report 4614882-1 (Version None)
Quarter: 2005Q1

REPORT INFORMATION
  Report Type: 
  Country: None (occurrence: None)
  Receive Date: 20050318
  Receipt Date: 20050318
  Transmission Date: 20050727
  Serious: No
  Sender: FDA-Public Use
  Company Number: None

PATIENT
  Age: 38 Year
  Sex: Female
  Weight: 65.7716 kg

DRUGS (1)
  1. ZOLOFT [Suspect]
     Indication: DEPRESSION
     Dosage: 1 PER DAY   ORAL
     Route: 048
     Dates: start: 20020101, end: 20030601

REACTIONS (3)
  - ANORGASMIA [None]
  - SALIVARY HYPERSECRETION [None]
  - SEXUAL DYSFUNCTION [None]
